FAERS Safety Report 10271926 (Version 3)
Quarter: 2014Q3

REPORT INFORMATION
  Report Type: Report from Study
  Country: CA (occurrence: CA)
  Receive Date: 20140702
  Receipt Date: 20140711
  Transmission Date: 20150326
  Serious: Yes (Death, Hospitalization, Other)
  Sender: FDA-Public Use
  Company Number: PHHY2011CA95808

PATIENT
  Age: 54 Year
  Sex: Male

DRUGS (2)
  1. ANTIBIOTICS [Concomitant]
     Active Substance: UNSPECIFIED INGREDIENT
     Dosage: UNK UKN, UNK
  2. SANDOSTATIN LAR DEPOT [Suspect]
     Active Substance: OCTREOTIDE ACETATE
     Indication: NEUROENDOCRINE TUMOUR
     Dosage: 30 MG, EVERY 4 WEEKS
     Route: 030
     Dates: start: 20091203, end: 20140528

REACTIONS (12)
  - Pain [Unknown]
  - Asthenia [Unknown]
  - Blood pressure increased [Unknown]
  - Nausea [Unknown]
  - Abdominal discomfort [Unknown]
  - Lower respiratory tract infection [Fatal]
  - Abscess [Fatal]
  - Localised infection [Unknown]
  - Memory impairment [Unknown]
  - Hypophagia [Unknown]
  - Pyrexia [Unknown]
  - Fatigue [Unknown]

NARRATIVE: CASE EVENT DATE: 20140129
